FAERS Safety Report 12426781 (Version 1)
Quarter: 2016Q2

REPORT INFORMATION
  Report Type: Spontaneous
  Country: US (occurrence: US)
  Receive Date: 20160601
  Receipt Date: 20160601
  Transmission Date: 20160815
  Serious: No
  Sender: FDA-Public Use
  Company Number: US-SEPTODONT-201503123

PATIENT
  Age: 61 Year
  Sex: Female
  Weight: 63.5 kg

DRUGS (1)
  1. SEPTOCAINE AND EPINEPHRINE [Suspect]
     Active Substance: ARTICAINE HYDROCHLORIDE\EPINEPHRINE BITARTRATE
     Indication: LOCAL ANAESTHESIA
     Dosage: 1 CARTRIDGE, FACIAL (BUCCAL) INFILTRATION IN THE AREA OF MENTAL FORAMEN IN VESTIBULAR FOLD ADJ. #20
     Route: 004
     Dates: start: 20151208, end: 20151208

REACTIONS (2)
  - Hypoaesthesia [Unknown]
  - Local swelling [Unknown]

NARRATIVE: CASE EVENT DATE: 20151210
